FAERS Safety Report 9305348 (Version 1)
Quarter: 2013Q2

REPORT INFORMATION
  Report Type: Spontaneous
  Country: IT (occurrence: IT)
  Receive Date: 20130523
  Receipt Date: 20130523
  Transmission Date: 20140414
  Serious: Yes (Hospitalization)
  Sender: FDA-Public Use
  Company Number: IT-PFIZER INC-2013157736

PATIENT
  Age: 30 Year
  Sex: Female

DRUGS (5)
  1. TAZOCIN [Suspect]
     Indication: CROHN^S DISEASE
     Dosage: 8 G, 1X/DAY
     Route: 042
     Dates: start: 20120425, end: 20120501
  2. URBASON SOLUBILE [Concomitant]
  3. ASACOL [Concomitant]
  4. FLAGYL [Concomitant]
  5. ESOPRAL [Concomitant]

REACTIONS (1)
  - Haematochezia [Recovering/Resolving]
